FAERS Safety Report 26034348 (Version 1)
Quarter: 2025Q4

REPORT INFORMATION
  Report Type: Spontaneous
  Country: US (occurrence: US)
  Receive Date: 20251112
  Receipt Date: 20251112
  Transmission Date: 20260117
  Serious: No
  Sender: HONG KONG KING-FRIEND INDUSTRIAL COMPANY LIMITED
  Company Number: US-HONGKONGKING-2025MPSPO00363

PATIENT
  Age: 78 Year
  Sex: Male

DRUGS (1)
  1. YUSIMRY [Suspect]
     Active Substance: ADALIMUMAB-AQVH
     Indication: Product used for unknown indication
     Route: 065
     Dates: start: 2025

REACTIONS (3)
  - Product dose omission issue [Unknown]
  - Device failure [Unknown]
  - Product quality issue [Unknown]

NARRATIVE: CASE EVENT DATE: 20250928
